FAERS Safety Report 7815110-6 (Version None)
Quarter: 2011Q4

REPORT INFORMATION
  Report Type: 
  Country: None (occurrence: None)
  Receive Date: 20111014
  Receipt Date: 20111003
  Transmission Date: 20120403
  Serious: Yes (Hospitalization)
  Sender: FDA-Public Use
  Company Number: US-JNJFOC-20111001497

PATIENT
  Sex: Male
  Weight: 86.18 kg

DRUGS (3)
  1. REMICADE [Suspect]
     Indication: RHEUMATOID ARTHRITIS
     Route: 042
     Dates: start: 20030101, end: 20080101
  2. AMBIEN [Concomitant]
     Indication: SLEEP DISORDER
     Route: 048
  3. DIOVAN [Concomitant]
     Indication: BLOOD PRESSURE
     Route: 048
     Dates: start: 20010101

REACTIONS (2)
  - PAIN [None]
  - AORTIC DISORDER [None]
